FAERS Safety Report 14909101 (Version 1)
Quarter: 2018Q2

REPORT INFORMATION
  Report Type: Report from Study
  Country: FR (occurrence: FR)
  Receive Date: 20180517
  Receipt Date: 20180517
  Transmission Date: 20180711
  Serious: Yes (Other)
  Sender: FDA-Public Use
  Company Number: FR-PFIZER INC-2018197523

PATIENT
  Age: 13 Year
  Sex: Male

DRUGS (20)
  1. 6-MERCAPTOPURINE MONOHYDRATE [Suspect]
     Active Substance: MERCAPTOPURINE
     Indication: ACUTE LYMPHOCYTIC LEUKAEMIA
     Dosage: 40 MG, 1X/DAY:QD
     Route: 048
     Dates: start: 20170113
  2. THIOGUANINE [Suspect]
     Active Substance: THIOGUANINE
     Indication: ACUTE LYMPHOCYTIC LEUKAEMIA
     Dosage: 100 MG, UNK
     Route: 048
     Dates: start: 20170627, end: 20170707
  3. CYCLOPHOSPHAMIDE. [Suspect]
     Active Substance: CYCLOPHOSPHAMIDE
     Dosage: 1640 MG, UNK
     Route: 042
     Dates: start: 20170627, end: 20170627
  4. ONCASPAR [Suspect]
     Active Substance: PEGASPARGASE
     Indication: ACUTE LYMPHOCYTIC LEUKAEMIA
     Dosage: 4200 IU
     Route: 042
     Dates: start: 20170602, end: 20170715
  5. CYTARABINE. [Suspect]
     Active Substance: CYTARABINE
     Dosage: 30 MG, 1X/DAY:QD
     Route: 037
     Dates: start: 20170602, end: 20170602
  6. PREDNISOLONE. [Suspect]
     Active Substance: PREDNISOLONE
     Indication: ACUTE LYMPHOCYTIC LEUKAEMIA
     Dosage: 15 MG, 1X/DAY:QD
     Route: 037
     Dates: start: 20161202
  7. HYDROCORTANCYL [Suspect]
     Active Substance: PREDNISONE
     Indication: ACUTE LYMPHOCYTIC LEUKAEMIA
     Dosage: UNK
     Route: 037
     Dates: start: 20170602, end: 20170602
  8. DEXAMETHASONE. [Suspect]
     Active Substance: DEXAMETHASONE
     Indication: ACUTE LYMPHOCYTIC LEUKAEMIA
     Dosage: 16.5 MG, UNK
     Route: 048
     Dates: start: 20170530, end: 20170613
  9. CYTARABINE. [Suspect]
     Active Substance: CYTARABINE
     Dosage: 120 MG, UNK
     Route: 042
     Dates: start: 20170629, end: 20170713
  10. DOXORUBICINE [Suspect]
     Active Substance: DOXORUBICIN
     Indication: ACUTE LYMPHOCYTIC LEUKAEMIA
     Dosage: 42 MG, UNK
     Route: 042
     Dates: start: 20170530, end: 20170613
  11. PREDNISONE. [Suspect]
     Active Substance: PREDNISONE
     Indication: ACUTE LYMPHOCYTIC LEUKAEMIA
     Dosage: 100 MG, 1X/DAY:QD
     Route: 048
     Dates: start: 20161129, end: 20161228
  12. CYCLOPHOSPHAMIDE. [Suspect]
     Active Substance: CYCLOPHOSPHAMIDE
     Indication: ACUTE LYMPHOCYTIC LEUKAEMIA
     Dosage: 1980 MG, 1X/DAY:QD
     Route: 042
     Dates: start: 20170113
  13. METHOTREXATE SODIUM. [Suspect]
     Active Substance: METHOTREXATE SODIUM
     Dosage: 15 MG, UNK
     Route: 037
     Dates: start: 20170602, end: 20170629
  14. THIOGUANINE [Suspect]
     Active Substance: THIOGUANINE
     Dosage: UNK
     Route: 065
     Dates: start: 20170710, end: 20170714
  15. DAUNORUBICIN [Suspect]
     Active Substance: DAUNORUBICIN
     Indication: ACUTE LYMPHOCYTIC LEUKAEMIA
     Dosage: 65 MG, 1X/DAY:QD
     Route: 042
     Dates: start: 20161130
  16. VINCRISTINE SULFATE. [Suspect]
     Active Substance: VINCRISTINE SULFATE
     Indication: ACUTE LYMPHOCYTIC LEUKAEMIA
     Dosage: 2 MG, 1X/DAY:QD
     Route: 042
     Dates: start: 20161130, end: 20170722
  17. CYTARABINE. [Suspect]
     Active Substance: CYTARABINE
     Indication: ACUTE LYMPHOCYTIC LEUKAEMIA
     Dosage: 110 MG, 1X/DAY
     Route: 042
     Dates: start: 20170629, end: 20170713
  18. METHOTREXATE SODIUM. [Suspect]
     Active Substance: METHOTREXATE SODIUM
     Indication: ACUTE LYMPHOCYTIC LEUKAEMIA
     Dosage: 15 MG, 1X/DAY:QD
     Route: 037
     Dates: start: 20161129
  19. METHOTREXATE SODIUM. [Suspect]
     Active Substance: METHOTREXATE SODIUM
     Dosage: 8000 MG, 1X/DAY
     Route: 042
     Dates: start: 20170417
  20. VP-16 [Suspect]
     Active Substance: ETOPOSIDE
     Indication: ACUTE LYMPHOCYTIC LEUKAEMIA
     Dosage: 240 MG, 1X/DAY:QD
     Route: 042
     Dates: start: 20170319, end: 20170321

REACTIONS (1)
  - Hypertriglyceridaemia [Recovered/Resolved]

NARRATIVE: CASE EVENT DATE: 20170620
